FAERS Safety Report 23815839 (Version 4)
Quarter: 2024Q3

REPORT INFORMATION
  Report Type: Report from Study
  Country: JP (occurrence: JP)
  Receive Date: 20240503
  Receipt Date: 20240903
  Transmission Date: 20241016
  Serious: Yes (Death, Hospitalization, Other)
  Sender: SHIONOGI
  Company Number: JP-shionogi-202403415_FTR_P_1

PATIENT

DRUGS (15)
  1. FETROJA [Suspect]
     Active Substance: CEFIDEROCOL SULFATE TOSYLATE
     Indication: Bacterial infection
     Dosage: 2 G, TID
     Route: 041
     Dates: start: 20240418, end: 20240425
  2. FETROJA [Suspect]
     Active Substance: CEFIDEROCOL SULFATE TOSYLATE
     Indication: Febrile neutropenia
     Dosage: 1.5 G, TID
     Route: 041
     Dates: start: 20240426, end: 20240427
  3. AZACTAM [Concomitant]
     Active Substance: AZTREONAM
     Indication: Bacterial infection
     Dosage: UNK
     Route: 065
     Dates: start: 20240421, end: 20240427
  4. AZACTAM [Concomitant]
     Active Substance: AZTREONAM
     Indication: Febrile neutropenia
  5. AMIKACIN SULFATE [Concomitant]
     Active Substance: AMIKACIN SULFATE
     Indication: Bacterial infection
     Dosage: UNK
     Route: 065
     Dates: start: 20240419, end: 20240426
  6. AMIKACIN SULFATE [Concomitant]
     Active Substance: AMIKACIN SULFATE
     Indication: Febrile neutropenia
  7. SOLU-MEDROL [Concomitant]
     Active Substance: METHYLPREDNISOLONE SODIUM SUCCINATE
     Indication: Haemophagocytic lymphohistiocytosis
     Dosage: UNK
     Route: 065
     Dates: start: 20240425, end: 20240427
  8. TYGACIL [Concomitant]
     Active Substance: TIGECYCLINE
     Indication: Bacterial infection
     Dosage: 100 MG, QD
     Route: 065
     Dates: start: 20240416, end: 20240416
  9. TYGACIL [Concomitant]
     Active Substance: TIGECYCLINE
     Indication: Febrile neutropenia
     Dosage: 50 MG, BID
     Route: 065
     Dates: start: 20240417, end: 20240418
  10. TYGACIL [Concomitant]
     Active Substance: TIGECYCLINE
     Dosage: UNK
     Route: 065
     Dates: start: 20240426, end: 20240427
  11. THROMBOMODULIN ALFA [Concomitant]
     Active Substance: THROMBOMODULIN ALFA
     Indication: Disseminated intravascular coagulation
     Dosage: UNK
     Route: 065
     Dates: start: 20240426, end: 20240427
  12. HUMAN RED BLOOD CELL [Concomitant]
     Active Substance: HUMAN RED BLOOD CELL
     Dosage: 280 ML, QD
     Route: 065
     Dates: end: 20240427
  13. PLATELETS [Concomitant]
     Active Substance: HUMAN PLATELET, ALLOGENIC
     Dosage: 200 ML, QD
     Route: 065
     Dates: end: 20240426
  14. ALBUMIN HUMAN [Concomitant]
     Active Substance: ALBUMIN HUMAN
     Dosage: UNK
     Route: 042
     Dates: end: 20240426
  15. FRESH FROZEN PLASMA-LEUKOCYTES REDUCED 480 [Concomitant]
     Dosage: UNK
     Route: 065
     Dates: start: 20240426, end: 20240426

REACTIONS (5)
  - Acute myeloid leukaemia [Fatal]
  - Renal impairment [Not Recovered/Not Resolved]
  - Haemophagocytic lymphohistiocytosis [Fatal]
  - Disseminated intravascular coagulation [Fatal]
  - Death [Fatal]

NARRATIVE: CASE EVENT DATE: 20240425
